FAERS Safety Report 4976107-7 (Version None)
Quarter: 2006Q2

REPORT INFORMATION
  Report Type: 
  Country: None (occurrence: None)
  Receive Date: 20060411
  Receipt Date: 20060327
  Transmission Date: 20061013
  Serious: Yes (Hospitalization)
  Sender: FDA-Public Use
  Company Number: 2006S1002634

PATIENT
  Sex: Female
  Weight: 157.3982 kg

DRUGS (4)
  1. CLOZAPINE [Suspect]
     Indication: SCHIZOPHRENIA
     Dosage: 350 MG;QD;ORAL, 100MG;QD;PO
     Route: 048
     Dates: start: 20000101, end: 20060322
  2. CLOZAPINE [Suspect]
     Indication: SCHIZOPHRENIA
     Dosage: 350 MG;QD;ORAL, 100MG;QD;PO
     Route: 048
     Dates: start: 20060325
  3. INSULIN ASPART [Concomitant]
  4. TOPIRAMATE [Concomitant]

REACTIONS (7)
  - AMMONIA INCREASED [None]
  - ASTERIXIS [None]
  - DELIRIUM [None]
  - DRUG TOXICITY [None]
  - OVERDOSE [None]
  - PNEUMONIA [None]
  - SEDATION [None]
